FAERS Safety Report 11183857 (Version 1)
Quarter: 2015Q2

REPORT INFORMATION
  Report Type: Spontaneous
  Country: US (occurrence: US)
  Receive Date: 20150612
  Receipt Date: 20150612
  Transmission Date: 20150821
  Serious: Yes (Other)
  Sender: FDA-Public Use
  Company Number: US-BAYER-2015-321032

PATIENT
  Age: 30 Year
  Sex: Female

DRUGS (1)
  1. MIRENA [Suspect]
     Active Substance: LEVONORGESTREL
     Indication: CONTRACEPTION
     Dosage: 20 MCG/24HR, CONT
     Route: 015
     Dates: start: 201110, end: 201502

REACTIONS (8)
  - Post procedural haemorrhage [None]
  - Pregnancy with contraceptive device [Not Recovered/Not Resolved]
  - Haemorrhage in pregnancy [None]
  - Menstruation delayed [Not Recovered/Not Resolved]
  - Hypomenorrhoea [None]
  - Drug ineffective [None]
  - Menstruation irregular [None]
  - Post procedural haemorrhage [None]

NARRATIVE: CASE EVENT DATE: 201110
